FAERS Safety Report 13567497 (Version 1)
Quarter: 2017Q2

REPORT INFORMATION
  Report Type: Spontaneous
  Country: US (occurrence: US)
  Receive Date: 20170519
  Receipt Date: 20170519
  Transmission Date: 20170830
  Serious: Yes (Other)
  Sender: FDA-Public Use
  Company Number: None

PATIENT
  Age: 47 Year
  Sex: Female

DRUGS (1)
  1. POMALYST [Suspect]
     Active Substance: POMALIDOMIDE
     Indication: PLASMA CELL MYELOMA
     Route: 048
     Dates: start: 20170419

REACTIONS (8)
  - Pulmonary congestion [None]
  - Upper-airway cough syndrome [None]
  - Productive cough [None]
  - Sinus pain [None]
  - Pneumonia [None]
  - Rhinorrhoea [None]
  - Myalgia [None]
  - Dysphonia [None]

NARRATIVE: CASE EVENT DATE: 20170511
